FAERS Safety Report 5754767-0 (Version None)
Quarter: 2008Q2

REPORT INFORMATION
  Report Type: 
  Country: None (occurrence: None)
  Receive Date: 20080530
  Receipt Date: 20080521
  Transmission Date: 20081010
  Serious: Yes (Death, Other)
  Sender: FDA-Public Use
  Company Number: US-PFIZER INC-2005142918

PATIENT
  Sex: Male
  Weight: 88.5 kg

DRUGS (6)
  1. CELEBREX [Suspect]
     Indication: INFLAMMATION
     Dates: start: 20020502, end: 20020705
  2. CELEBREX [Suspect]
     Indication: ARTHRITIS
  3. CELEBREX [Suspect]
     Indication: ARTHRALGIA
  4. BEXTRA [Suspect]
     Indication: ARTHRALGIA
     Dates: start: 20020925, end: 20021025
  5. BEXTRA [Suspect]
     Indication: INFLAMMATION
  6. VIOXX [Suspect]
     Indication: DRUG USE FOR UNKNOWN INDICATION

REACTIONS (2)
  - HYPERTENSION [None]
  - MYOCARDIAL INFARCTION [None]
